FAERS Safety Report 15788356 (Version 1)
Quarter: 2019Q1

REPORT INFORMATION
  Report Type: Spontaneous
  Country: JP (occurrence: JP)
  Receive Date: 20190104
  Receipt Date: 20190104
  Transmission Date: 20190417
  Serious: Yes (Other)
  Sender: FDA-Public Use
  Company Number: JP-ROCHE-2239064

PATIENT
  Age: 66 Year
  Sex: Male

DRUGS (3)
  1. DENOSINE (JAPAN) [Suspect]
     Active Substance: GANCICLOVIR
     Indication: PRODUCT USED FOR UNKNOWN INDICATION
     Route: 041
  2. PREDONINE [Concomitant]
     Active Substance: PREDNISOLONE
     Route: 065
  3. PREDONINE [Concomitant]
     Active Substance: PREDNISOLONE
     Route: 065

REACTIONS (1)
  - Cytopenia [Unknown]
